FAERS Safety Report 12526038 (Version 1)
Quarter: 2016Q3

REPORT INFORMATION
  Report Type: Spontaneous
  Country: US (occurrence: US)
  Receive Date: 20160705
  Receipt Date: 20160705
  Transmission Date: 20161109
  Serious: No
  Sender: FDA-Public Use
  Company Number: US-PFIZER INC-2016294260

PATIENT
  Sex: Female

DRUGS (6)
  1. HYDROCODONE [Suspect]
     Active Substance: HYDROCODONE
     Indication: MIGRAINE
     Dosage: UNK
  2. DICHLORALPHENAZONE [Suspect]
     Active Substance: DICHLORALPHENAZONE
     Indication: MIGRAINE
     Dosage: UNK
  3. CHLORHEXIDINE [Suspect]
     Active Substance: CHLORHEXIDINE
     Indication: MIGRAINE
     Dosage: UNK
  4. ACETAMINOPHEN AND CODEINE [Suspect]
     Active Substance: ACETAMINOPHEN\CODEINE PHOSPHATE
     Indication: MIGRAINE
     Dosage: UNK
  5. ISOMETHEPTENE [Suspect]
     Active Substance: ISOMETHEPTENE
     Indication: MIGRAINE
     Dosage: UNK
  6. SULFAMETHOXAZOLE/TRIMETHOPRIM [Suspect]
     Active Substance: SULFAMETHOXAZOLE\TRIMETHOPRIM
     Indication: MIGRAINE
     Dosage: UNK

REACTIONS (1)
  - Drug hypersensitivity [Unknown]
